FAERS Safety Report 9285604 (Version 2)
Quarter: 2013Q2

REPORT INFORMATION
  Report Type: Spontaneous
  Country: GB (occurrence: GB)
  Receive Date: 20130513
  Receipt Date: 20130517
  Transmission Date: 20140414
  Serious: Yes (Death, Other)
  Sender: FDA-Public Use
  Company Number: GB-JNJFOC-20130505344

PATIENT
  Sex: 0

DRUGS (34)
  1. DOXORUBICIN [Suspect]
     Indication: DIFFUSE LARGE B-CELL LYMPHOMA
     Dosage: PACEBOM, ON DAY 1, EVERY 2 WEEKS FOR 6 CYCLES
     Route: 042
     Dates: start: 1987, end: 1992
  2. DOXORUBICIN [Suspect]
     Indication: DIFFUSE LARGE B-CELL LYMPHOMA
     Dosage: PACEBO, ON DAY 1, EVERY 2 WEEKS FOR 4 - 8 CYCLES
     Route: 042
     Dates: start: 1992, end: 1997
  3. DOXORUBICIN [Suspect]
     Indication: DIFFUSE LARGE B-CELL LYMPHOMA
     Dosage: CHOP, ON DAYS 1 AND 8, EVERY 28 DAYS FOR 6 - 8 CYCLES
     Route: 042
     Dates: start: 1987, end: 1992
  4. DOXORUBICIN [Suspect]
     Indication: DIFFUSE LARGE B-CELL LYMPHOMA
     Dosage: CHOP, ON DAYS 1, EVERY 21 DAYS FOR 6 - 8 CYCLES
     Route: 042
     Dates: start: 1997, end: 2003
  5. DOXORUBICIN [Suspect]
     Indication: DIFFUSE LARGE B-CELL LYMPHOMA
     Dosage: CHOP, ON DAYS 1 AND 8, EVERY 28 DAYS FOR 6 - 8 CYCLES
     Route: 065
     Dates: start: 1987, end: 1992
  6. DOXORUBICIN [Suspect]
     Indication: DIFFUSE LARGE B-CELL LYMPHOMA
     Dosage: CHOP, ON DAYS 1, EVERY 21 DAYS FOR 6 - 8 CYCLES
     Route: 065
     Dates: start: 1997, end: 2003
  7. DOXORUBICIN [Suspect]
     Indication: DIFFUSE LARGE B-CELL LYMPHOMA
     Dosage: PACEBO, ON DAY 1, EVERY 2 WEEKS FOR 4 - 8 CYCLES
     Route: 065
     Dates: start: 1992, end: 1997
  8. DOXORUBICIN [Suspect]
     Indication: DIFFUSE LARGE B-CELL LYMPHOMA
     Dosage: PACEBOM, ON DAY 1, EVERY 2 WEEKS FOR 6 CYCLES
     Route: 065
     Dates: start: 1987, end: 1992
  9. CYCLOPHOSPHAMIDE [Suspect]
     Indication: DIFFUSE LARGE B-CELL LYMPHOMA
     Dosage: PMITCEBO, ON DAY 1, EVERY 21 DAYS FOR 4 - 8 CYCLES
     Route: 065
     Dates: start: 1997, end: 2003
  10. CYCLOPHOSPHAMIDE [Suspect]
     Indication: DIFFUSE LARGE B-CELL LYMPHOMA
     Dosage: CHOP, ON DAYS 1 AND 8, EVERY 28 DAYS FOR 6 - 8 CYCLES
     Route: 065
     Dates: start: 1987, end: 1992
  11. CYCLOPHOSPHAMIDE [Suspect]
     Indication: DIFFUSE LARGE B-CELL LYMPHOMA
     Dosage: PACEBOM, ON DAY 1, EVERY 2 WEEKS FOR 6 CYCLES
     Route: 065
     Dates: start: 1987, end: 1992
  12. CYCLOPHOSPHAMIDE [Suspect]
     Indication: DIFFUSE LARGE B-CELL LYMPHOMA
     Dosage: PACEBO, ON DAY 1, EVERY 2 WEEKS FOR 4 - 8 CYCLES
     Route: 065
     Dates: start: 1992, end: 1997
  13. CYCLOPHOSPHAMIDE [Suspect]
     Indication: DIFFUSE LARGE B-CELL LYMPHOMA
     Dosage: PMITCEBO, ON DAY 1, EVERY 2 WEEKS FOR 4 - 8 CYCLES
     Route: 065
     Dates: start: 1992, end: 1997
  14. CYCLOPHOSPHAMIDE [Suspect]
     Indication: DIFFUSE LARGE B-CELL LYMPHOMA
     Dosage: CHOP, ON DAY 1, EVERY 21 DAYS FOR 6 - 8 CYCLES
     Route: 065
     Dates: start: 1997, end: 2003
  15. VINCRISTINE [Suspect]
     Indication: DIFFUSE LARGE B-CELL LYMPHOMA
     Dosage: PMITCEBO, MAXIMUM 2 MG, ON DAY 8, EVERY 2 WEEKS FOR 4 - 8 CYCLES
     Route: 065
     Dates: start: 1992, end: 1997
  16. VINCRISTINE [Suspect]
     Indication: DIFFUSE LARGE B-CELL LYMPHOMA
     Dosage: CHOP, MAXIMUM 2 MG, ON DAY 1, EVERY 21 DAYS FOR 6 - 8 CYCLES
     Route: 065
     Dates: start: 1997, end: 2003
  17. VINCRISTINE [Suspect]
     Indication: DIFFUSE LARGE B-CELL LYMPHOMA
     Dosage: PMITCEBO, MAXIMUM 2 MG, ON DAY 8, EVERY 2 WEEKS FOR 4 - 8 CYCLES
     Route: 065
     Dates: start: 1997, end: 2003
  18. VINCRISTINE [Suspect]
     Indication: DIFFUSE LARGE B-CELL LYMPHOMA
     Dosage: PACEBO, MAXIMUM 2 MG, ON DAY 8, EVERY 2 WEEKS FOR 4 - 8 CYCLES
     Route: 065
     Dates: start: 1992, end: 1997
  19. VINCRISTINE [Suspect]
     Indication: DIFFUSE LARGE B-CELL LYMPHOMA
     Dosage: CHOP, MAXIMUM 2 MG, ON DAY 1 AND 8, EVERY 28 DAYS FOR 6 - 8 CYCLES
     Route: 065
     Dates: start: 1987, end: 1992
  20. VINCRISTINE [Suspect]
     Indication: DIFFUSE LARGE B-CELL LYMPHOMA
     Dosage: PACEBOM, MAXIMUM 2 MG, ON DAY 1, EVERY 2 WEEKS FOR 6 CYCLES
     Route: 065
     Dates: start: 1987, end: 1992
  21. PREDNISOLONE [Suspect]
     Indication: DIFFUSE LARGE B-CELL LYMPHOMA
     Dosage: PMITCEBO, FOR WEEK 1 TO 4 AND THEN ALTERNATE DAYS, EVERY 2 WEEKS FOR 4 - 8 CYCLES
     Route: 065
     Dates: start: 1992, end: 1997
  22. PREDNISOLONE [Suspect]
     Indication: DIFFUSE LARGE B-CELL LYMPHOMA
     Dosage: CHOP, ON DAY 1 TO 5, EVERY 21 DAYS FOR 6 - 8 CYCLES
     Route: 065
     Dates: start: 1997, end: 2003
  23. PREDNISOLONE [Suspect]
     Indication: DIFFUSE LARGE B-CELL LYMPHOMA
     Dosage: CHOP, FROM DAYS 1 TO 8, EVERY 28 DAYS FOR 6 - 8 CYCLES
     Route: 065
     Dates: start: 1987, end: 1992
  24. PREDNISOLONE [Suspect]
     Indication: DIFFUSE LARGE B-CELL LYMPHOMA
     Dosage: PMITCEBO, FOR WEEK 1 TO 4 AND THEN ALTERNATE DAYS, EVERY 2 WEEKS FOR 4 - 8 CYCLES
     Route: 065
     Dates: start: 1997, end: 2003
  25. PREDNISOLONE [Suspect]
     Indication: DIFFUSE LARGE B-CELL LYMPHOMA
     Dosage: PACEBO, FOR WEEK 1 TO 4 AND THEN ALTERNATE DAYS, EVERY 2 WEEKS FOR 4 TO 8 CYCLES
     Route: 065
     Dates: start: 1992, end: 1997
  26. PREDNISOLONE [Suspect]
     Indication: DIFFUSE LARGE B-CELL LYMPHOMA
     Dosage: PACEBOM, FOR WEEK 1 TO 4 AND THEN ALTERNATE DAYS, EVERY 2 WEEKS FOR 6 CYCLES
     Route: 065
     Dates: start: 1987, end: 1992
  27. ETOPOSIDE [Suspect]
     Indication: DIFFUSE LARGE B-CELL LYMPHOMA
     Dosage: PACEBO, ON DAY 1, EVERY 2 WEEKS FOR 4 - 8 CYCLES
     Route: 065
     Dates: start: 1992, end: 1997
  28. ETOPOSIDE [Suspect]
     Indication: DIFFUSE LARGE B-CELL LYMPHOMA
     Dosage: PMITCEBO, ON DAY 1, EVERY 21 DAYS FOR 4 - 8 CYCLES
     Route: 065
     Dates: start: 1997, end: 2003
  29. ETOPOSIDE [Suspect]
     Indication: DIFFUSE LARGE B-CELL LYMPHOMA
     Dosage: PMITCEBO, ON DAY 1, EVERY 2 WEEKS FOR 4 - 8 CYCLES
     Route: 065
     Dates: start: 1992, end: 1997
  30. ETOPOSIDE [Suspect]
     Indication: DIFFUSE LARGE B-CELL LYMPHOMA
     Dosage: PACEBOM, ON DAY 1, EVERY 2 WEEKS FOR 6 CYCLES
     Route: 065
     Dates: start: 1992, end: 1997
  31. METHOTREXATE [Suspect]
     Indication: DIFFUSE LARGE B-CELL LYMPHOMA
     Dosage: PACEBOM, ON DAY 8, EVERY 2 WEEKS FOR 6 CYCLES
     Route: 065
     Dates: start: 1987, end: 1992
  32. MITOXANTRONE [Suspect]
     Indication: DIFFUSE LARGE B-CELL LYMPHOMA
     Dosage: PACEBOM, ON DAY 1, EVERY 2 WEEKS FOR 6 CYCLES
     Route: 065
     Dates: start: 1997, end: 2003
  33. MITOXANTRONE [Suspect]
     Indication: DIFFUSE LARGE B-CELL LYMPHOMA
     Dosage: PACEBOM, ON DAY 1, EVERY 2 WEEKS FOR 6 CYCLES
     Route: 065
     Dates: start: 1992, end: 1997
  34. GRANULOCYTE COLONY STIMULATING FACTOR [Suspect]
     Indication: DIFFUSE LARGE B-CELL LYMPHOMA
     Route: 065
     Dates: start: 1997, end: 2003

REACTIONS (15)
  - Lymphoma [Fatal]
  - Diffuse large B-cell lymphoma [Fatal]
  - Infection [Fatal]
  - Pulmonary embolism [Fatal]
  - Cardiovascular disorder [Fatal]
  - Renal failure [Fatal]
  - Hepatic failure [Fatal]
  - Intestinal perforation [Fatal]
  - Haemorrhage [Fatal]
  - Pulmonary fibrosis [Fatal]
  - Neoplasm malignant [Fatal]
  - Death [Fatal]
  - Treatment failure [Unknown]
  - Diffuse large B-cell lymphoma [Unknown]
  - Diffuse large B-cell lymphoma recurrent [Unknown]
